FAERS Safety Report 12226766 (Version 2)
Quarter: 2016Q2

REPORT INFORMATION
  Report Type: Report from Study
  Country: US (occurrence: US)
  Receive Date: 20160331
  Receipt Date: 20160405
  Transmission Date: 20160815
  Serious: Yes (Hospitalization, Other)
  Sender: FDA-Public Use
  Company Number: US-GILEAD-2016-0201467

PATIENT
  Age: 87 Year
  Sex: Male
  Weight: 74 kg

DRUGS (6)
  1. ROMIPLOSTIM [Suspect]
     Active Substance: ROMIPLOSTIM
     Indication: THROMBOCYTOPENIA
     Dosage: 3 MG/KG, UNK
     Route: 058
     Dates: start: 20151109, end: 20160308
  2. IDELALISIB [Suspect]
     Active Substance: IDELALISIB
     Indication: CHRONIC LYMPHOCYTIC LEUKAEMIA
     Dosage: 100 MG, BID
     Route: 048
     Dates: start: 20150706, end: 20160226
  3. SIMVASTATIN. [Concomitant]
     Active Substance: SIMVASTATIN
     Dosage: 20 MG, UNK
     Route: 048
     Dates: start: 20140401
  4. OMEPRAZOLE. [Concomitant]
     Active Substance: OMEPRAZOLE
     Dosage: 40 MG, UNK
     Route: 048
     Dates: start: 20150715
  5. IDELALISIB [Suspect]
     Active Substance: IDELALISIB
     Dosage: 200 MG, UNK
     Route: 048
     Dates: start: 20150707
  6. MULTIVITAMIN                       /00097801/ [Concomitant]
     Active Substance: VITAMINS
     Dosage: 1 DF, UNK
     Route: 048
     Dates: start: 20140401

REACTIONS (3)
  - Diarrhoea [Not Recovered/Not Resolved]
  - Renal failure [Unknown]
  - Therapy cessation [Unknown]

NARRATIVE: CASE EVENT DATE: 20160215
